FAERS Safety Report 8256856-8 (Version None)
Quarter: 2012Q2

REPORT INFORMATION
  Report Type: 
  Country: None (occurrence: None)
  Receive Date: 20120403
  Receipt Date: 20120328
  Transmission Date: 20120825
  Serious: Yes (Other)
  Sender: FDA-Public Use
  Company Number: JP-PFIZER INC-2012047556

PATIENT
  Age: 60 Year
  Sex: Female

DRUGS (5)
  1. IRINOTECAN [Concomitant]
     Dosage: UNK
  2. LOXONIN [Concomitant]
     Dosage: UNK
  3. GRANISETRON [Concomitant]
     Dosage: UNK
  4. LANSOPRAZOLE [Concomitant]
     Dosage: UNK
  5. LYRICA [Suspect]
     Indication: PAIN MANAGEMENT
     Dosage: 150 MG/DAY
     Route: 048

REACTIONS (1)
  - ELECTROCARDIOGRAM QT PROLONGED [None]
